FAERS Safety Report 24028948 (Version 1)
Quarter: 2024Q2

REPORT INFORMATION
  Report Type: Spontaneous
  Country: US (occurrence: None)
  Receive Date: 20240627
  Receipt Date: 20240627
  Transmission Date: 20240716
  Serious: Yes (Other)
  Sender: FDA-Public Use
  Company Number: None

PATIENT
  Age: 44 Year
  Sex: Female

DRUGS (1)
  1. LINZESS [Suspect]
     Active Substance: LINACLOTIDE
     Indication: Irritable bowel syndrome
     Dosage: OTHER STRENGTH : MCG;?OTHER QUANTITY : 1 TABLET(S);?
     Route: 048
     Dates: start: 20240502, end: 20240619

REACTIONS (6)
  - Urticaria [None]
  - Pruritus [None]
  - Feeling hot [None]
  - Dermatitis contact [None]
  - Hypersensitivity [None]
  - Contusion [None]

NARRATIVE: CASE EVENT DATE: 20240602
